FAERS Safety Report 4869325-X (Version None)
Quarter: 2005Q4

REPORT INFORMATION
  Report Type: 
  Country: None (occurrence: None)
  Receive Date: 20051228
  Receipt Date: 20051228
  Transmission Date: 20060501
  Serious: Yes (Disabling)
  Sender: FDA-Public Use
  Company Number: None

PATIENT
  Age: 48 Year
  Sex: Male
  Weight: 85.2762 kg

DRUGS (1)
  1. VIAGRA [Suspect]
     Indication: ERECTILE DYSFUNCTION
     Dosage: ORAL
     Route: 048

REACTIONS (5)
  - ASTHENOPIA [None]
  - COLOUR BLINDNESS [None]
  - OPTIC ISCHAEMIC NEUROPATHY [None]
  - OPTIC NERVE INJURY [None]
  - PHOTOPHOBIA [None]
